FAERS Safety Report 6570255-6 (Version None)
Quarter: 2010Q1

REPORT INFORMATION
  Report Type: 
  Country: None (occurrence: None)
  Receive Date: 20100204
  Receipt Date: 20100129
  Transmission Date: 20100710
  Serious: Yes (Hospitalization)
  Sender: FDA-Public Use
  Company Number: AU-PURDUE-USA-2010-0042044

PATIENT
  Sex: Female
  Weight: 48 kg

DRUGS (6)
  1. OXYCONTIN [Suspect]
     Indication: DRUG USE FOR UNKNOWN INDICATION
  2. ENDONE [Suspect]
     Indication: DRUG USE FOR UNKNOWN INDICATION
  3. EFFEXOR XR [Suspect]
     Indication: DRUG USE FOR UNKNOWN INDICATION
  4. SOMAC [Suspect]
     Indication: DRUG USE FOR UNKNOWN INDICATION
  5. CALTRATE                           /00108001/ [Suspect]
     Indication: DRUG USE FOR UNKNOWN INDICATION
  6. LIVOSTIN                           /01196302/ [Suspect]
     Indication: DRUG USE FOR UNKNOWN INDICATION

REACTIONS (2)
  - MYALGIA [None]
  - PYREXIA [None]
